FAERS Safety Report 10488618 (Version 1)
Quarter: 2014Q4

REPORT INFORMATION
  Report Type: Spontaneous
  Country: SE (occurrence: SE)
  Receive Date: 20141002
  Receipt Date: 20141002
  Transmission Date: 20150528
  Serious: Yes (Other)
  Sender: FDA-Public Use
  Company Number: SE-SHIRE-SE201406285

PATIENT
  Sex: Male

DRUGS (1)
  1. XAGRID [Suspect]
     Active Substance: ANAGRELIDE HYDROCHLORIDE
     Indication: PRODUCT USED FOR UNKNOWN INDICATION
     Dosage: 0.5 MG, 1X/DAY:QD
     Route: 048
     Dates: start: 2009

REACTIONS (2)
  - Renal impairment [Unknown]
  - Adverse event [Unknown]
